FAERS Safety Report 4875509-7 (Version None)
Quarter: 2006Q1

REPORT INFORMATION
  Report Type: 
  Country: None (occurrence: None)
  Receive Date: 20060109
  Receipt Date: 20051230
  Transmission Date: 20060701
  Serious: Yes (Hospitalization)
  Sender: FDA-Public Use
  Company Number: PHRM2005FR03422

PATIENT
  Age: 22 Year
  Sex: Male
  Weight: 80 kg

DRUGS (5)
  1. TRILEPTAL [Suspect]
     Dosage: 600 MG, BID
     Route: 048
     Dates: start: 20020801, end: 20050901
  2. NEURONTIN [Concomitant]
     Dosage: 800 MG, BID
  3. LAROXYL [Concomitant]
  4. RIVOTRIL [Concomitant]
  5. MOPRAL [Concomitant]

REACTIONS (3)
  - PAIN IN EXTREMITY [None]
  - PYREXIA [None]
  - VIRAL INFECTION [None]
